FAERS Safety Report 19777517 (Version 1)
Quarter: 2021Q3

REPORT INFORMATION
  Report Type: Spontaneous
  Country: IN (occurrence: IN)
  Receive Date: 20210902
  Receipt Date: 20210902
  Transmission Date: 20211014
  Serious: Yes (Death, Other)
  Sender: FDA-Public Use
  Company Number: IN-LUPIN PHARMACEUTICALS INC.-2021-16203

PATIENT
  Age: 11 Month
  Sex: Male

DRUGS (4)
  1. BCG VACCINE [Concomitant]
     Active Substance: BCG VACCINE
     Indication: IMMUNISATION
     Dosage: UNK
     Route: 065
  2. CLARITHROMYCIN. [Suspect]
     Active Substance: CLARITHROMYCIN
     Indication: MYCOBACTERIAL INFECTION
     Dosage: UNK
     Route: 065
  3. AMIKACIN. [Suspect]
     Active Substance: AMIKACIN
     Indication: MYCOBACTERIAL INFECTION
     Dosage: UNK
     Route: 065
  4. LINEZOLID. [Suspect]
     Active Substance: LINEZOLID
     Indication: MYCOBACTERIAL INFECTION
     Dosage: UNK
     Route: 065

REACTIONS (3)
  - Mycobacterial infection [Fatal]
  - Drug ineffective [Fatal]
  - Anaemia [Fatal]
